FAERS Safety Report 10507340 (Version 1)
Quarter: 2014Q3

REPORT INFORMATION
  Report Type: Spontaneous
  Country: US (occurrence: None)
  Receive Date: 20140915
  Receipt Date: 20140915
  Transmission Date: 20150326
  Serious: Yes (Other)
  Sender: FDA-Public Use
  Company Number: 2014-US-004081

PATIENT
  Age: 57 Year
  Sex: Female
  Weight: 69.8 kg

DRUGS (9)
  1. METOPROLOL (METOPROLOL SUCCINATE) [Concomitant]
  2. XYREM [Suspect]
     Active Substance: SODIUM OXYBATE
     Indication: CATAPLEXY
     Route: 048
     Dates: start: 201208, end: 2012
  3. ADDERALL [Suspect]
     Active Substance: AMPHETAMINE ASPARTATE\AMPHETAMINE SULFATE\DEXTROAMPHETAMINE SACCHARATE\DEXTROAMPHETAMINE SULFATE
     Indication: PRODUCT USED FOR UNKNOWN INDICATION
  4. GABAPENTIN (GABAPENTIN) [Concomitant]
     Active Substance: GABAPENTIN
  5. KLOR-CON (POTASSIUM CHLORIDE) [Concomitant]
  6. LISINOPRIL (LISINOPRIL DIHYDRATE) [Concomitant]
  7. XYREM [Suspect]
     Active Substance: SODIUM OXYBATE
     Indication: NARCOLEPSY
     Route: 048
     Dates: start: 201208, end: 2012
  8. ZANAFLEX [Concomitant]
     Active Substance: TIZANIDINE HYDROCHLORIDE
  9. GABAPENTIN (GABAPENTIN) [Concomitant]
     Active Substance: GABAPENTIN

REACTIONS (10)
  - Malaise [None]
  - Diarrhoea [None]
  - Fatigue [None]
  - Headache [None]
  - Intervertebral disc disorder [None]
  - Disorientation [None]
  - Enuresis [None]
  - Hypertension [None]
  - Neck pain [None]
  - Eye discharge [None]

NARRATIVE: CASE EVENT DATE: 20140330
